FAERS Safety Report 9611737 (Version 1)
Quarter: 2013Q4

REPORT INFORMATION
  Report Type: Spontaneous
  Country: TR (occurrence: None)
  Receive Date: 20131008
  Receipt Date: 20131008
  Transmission Date: 20140711
  Serious: Yes (Other)
  Sender: FDA-Public Use
  Company Number: 2013-0005

PATIENT
  Sex: 0

DRUGS (1)
  1. FLUOXETINE [Suspect]

REACTIONS (3)
  - Weight decreased [None]
  - Blood cholesterol decreased [None]
  - Blood triglycerides decreased [None]
